FAERS Safety Report 21334859 (Version 1)
Quarter: 2022Q3

REPORT INFORMATION
  Report Type: Spontaneous
  Country: CA (occurrence: CA)
  Receive Date: 20220914
  Receipt Date: 20220914
  Transmission Date: 20221027
  Serious: Yes (Other)
  Sender: FDA-Public Use
  Company Number: CA-BIOMARINAP-CA-2022-145522

PATIENT

DRUGS (4)
  1. NAGLAZYME [Suspect]
     Active Substance: GALSULFASE
     Indication: Mucopolysaccharidosis VI
     Dosage: 1 MILLIGRAM/KILOGRAM, QW
     Route: 042
     Dates: start: 20191001
  2. ACETAMINOPHEN [Concomitant]
     Active Substance: ACETAMINOPHEN
     Indication: Premedication
     Dosage: 200 MILLIGRAM, QW
     Route: 048
     Dates: start: 20200807
  3. CLARITIN [Concomitant]
     Active Substance: LORATADINE
     Indication: Premedication
     Dosage: 5 MILLILITER, QW
     Route: 048
     Dates: start: 202008
  4. EMLA [Concomitant]
     Active Substance: LIDOCAINE\PRILOCAINE
     Indication: Premedication
     Dosage: UNK, QW
     Dates: start: 202008

REACTIONS (14)
  - Aortic valve incompetence [Unknown]
  - Ventricular enlargement [Unknown]
  - Mitral valve thickening [Unknown]
  - Cerebral atrophy [Unknown]
  - Magnetic resonance imaging spinal abnormal [Unknown]
  - Joint contracture [Unknown]
  - Tendon disorder [Unknown]
  - Movement disorder [Unknown]
  - Facial asymmetry [Unknown]
  - Complication associated with device [Unknown]
  - Grip strength decreased [Unknown]
  - Trigger finger [Unknown]
  - Speech disorder developmental [Unknown]
  - Distractibility [Unknown]

NARRATIVE: CASE EVENT DATE: 20220101
